FAERS Safety Report 7350133-5 (Version None)
Quarter: 2011Q1

REPORT INFORMATION
  Report Type: 
  Country: None (occurrence: None)
  Receive Date: 20110314
  Receipt Date: 20110307
  Transmission Date: 20110831
  Serious: Yes (Hospitalization)
  Sender: FDA-Public Use
  Company Number: A0916982A

PATIENT
  Age: 71 Year
  Sex: Male

DRUGS (4)
  1. ADVAIR DISKUS 100/50 [Suspect]
     Dosage: 1PUFF TWICE PER DAY
     Route: 055
  2. LISINOPRIL AND HYDROCHLOROTHIAZIDE [Concomitant]
  3. METFORMIN [Concomitant]
  4. UNSPECIFIED MEDICATION [Concomitant]

REACTIONS (1)
  - FATIGUE [None]
